FAERS Safety Report 5206141-3 (Version None)
Quarter: 2006Q4

REPORT INFORMATION
  Report Type: 
  Country: None (occurrence: None)
  Receive Date: 20061026
  Receipt Date: 20060911
  Transmission Date: 20070319
  Serious: No
  Sender: FDA-Public Use
  Company Number: 2006112149

PATIENT
  Sex: Female

DRUGS (5)
  1. LYRICA [Suspect]
     Indication: HYPOAESTHESIA
     Dosage: 150 MG (75 MG, 2 IN 1 D)
     Dates: start: 20060101
  2. LYRICA [Suspect]
     Indication: PAIN
     Dosage: 150 MG (75 MG, 2 IN 1 D)
     Dates: start: 20060101
  3. NEURONTIN [Suspect]
     Indication: HYPOAESTHESIA
  4. NEURONTIN [Suspect]
     Indication: PAIN
  5. THYROID TAB [Concomitant]

REACTIONS (4)
  - DRUG INEFFECTIVE [None]
  - PRURITUS [None]
  - RASH [None]
  - URTICARIA [None]
